FAERS Safety Report 18670379 (Version 1)
Quarter: 2020Q4

REPORT INFORMATION
  Report Type: Spontaneous
  Country: DE (occurrence: DE)
  Receive Date: 20201228
  Receipt Date: 20201228
  Transmission Date: 20210114
  Serious: Yes (Other)
  Sender: FDA-Public Use
  Company Number: DE-PFIZER INC-2020507551

PATIENT
  Sex: Female

DRUGS (6)
  1. IRBESARTAN. [Suspect]
     Active Substance: IRBESARTAN
     Dosage: UNK
     Route: 065
  2. ENTRESTO [Concomitant]
     Active Substance: SACUBITRIL\VALSARTAN
     Indication: HYPERTENSION
     Dosage: UNK, HALF A TABLET
     Route: 065
     Dates: start: 20201205, end: 202012
  3. DILZEM [Suspect]
     Active Substance: DILTIAZEM
     Dosage: UNK
     Route: 065
  4. TORASEMID AL [Concomitant]
     Active Substance: TORSEMIDE
     Dosage: UNK
     Route: 065
  5. MOXONIDIN HEUMANN [Concomitant]
     Dosage: UNK
     Route: 065
     Dates: start: 20201209
  6. ENTRESTO [Concomitant]
     Active Substance: SACUBITRIL\VALSARTAN
     Dosage: 1 DF, BID
     Route: 065
     Dates: start: 20201210

REACTIONS (1)
  - Hypertension [Unknown]
